FAERS Safety Report 4324537-9 (Version None)
Quarter: 2004Q1

REPORT INFORMATION
  Report Type: 
  Country: None (occurrence: None)
  Receive Date: 20040323
  Receipt Date: 20031223
  Transmission Date: 20041129
  Serious: Yes (Hospitalization)
  Sender: FDA-Public Use
  Company Number: 2004203899US

PATIENT
  Age: 36 Year
  Sex: Female

DRUGS (6)
  1. CELEBREX [Suspect]
     Indication: SYSTEMIC LUPUS ERYTHEMATOSUS
     Dates: start: 20031204
  2. PREDNISONE [Concomitant]
  3. PLAQUENIL [Concomitant]
  4. FOLIC ACID [Concomitant]
  5. PROZAC [Concomitant]
  6. VALTREX [Concomitant]

REACTIONS (6)
  - CHEST PAIN [None]
  - ELECTROCARDIOGRAM ST SEGMENT ABNORMAL [None]
  - HERPES ZOSTER [None]
  - INFLUENZA LIKE ILLNESS [None]
  - PAIN IN EXTREMITY [None]
  - PERICARDITIS [None]
